FAERS Safety Report 4773006-0 (Version None)
Quarter: 2005Q3

REPORT INFORMATION
  Report Type: 
  Country: None (occurrence: None)
  Receive Date: 20050919
  Receipt Date: 20050907
  Transmission Date: 20060218
  Serious: Yes (Hospitalization)
  Sender: FDA-Public Use
  Company Number: 2005UW13421

PATIENT
  Age: 28398 Day
  Sex: Female

DRUGS (8)
  1. IRESSA [Suspect]
     Indication: RENAL CELL CARCINOMA STAGE UNSPECIFIED
     Route: 048
     Dates: start: 20050712, end: 20050830
  2. PEGYLATED INTERFERON ALFA 2B [Suspect]
     Indication: RENAL CELL CARCINOMA STAGE UNSPECIFIED
     Dosage: 300 MG ONCE/WEEK
     Dates: start: 20050712, end: 20050830
  3. DOCUSATE [Concomitant]
     Route: 048
  4. MEGASTROL [Concomitant]
     Route: 048
  5. NYSTATIN [Concomitant]
     Route: 048
  6. DIOVAN [Concomitant]
     Route: 048
  7. DIPHENHYDRAMINE HCL [Concomitant]
     Route: 048
  8. ACETAMINOPHEN [Concomitant]
     Route: 048

REACTIONS (4)
  - BLOOD CREATININE INCREASED [None]
  - CHILLS [None]
  - DEHYDRATION [None]
  - FATIGUE [None]
